FAERS Safety Report 13061747 (Version 1)
Quarter: 2016Q4

REPORT INFORMATION
  Report Type: Spontaneous
  Country: US (occurrence: US)
  Receive Date: 20161226
  Receipt Date: 20161226
  Transmission Date: 20170207
  Serious: No
  Sender: FDA-Public Use
  Company Number: US-NOVEN PHARMACEUTICALS, INC.-US2016000165

PATIENT

DRUGS (4)
  1. PROGESTERONE. [Concomitant]
     Active Substance: PROGESTERONE
  2. MINIVELLE [Suspect]
     Active Substance: ESTRADIOL
     Dosage: 0.025 MG, UNKNOWN
     Route: 062
  3. MINIVELLE [Suspect]
     Active Substance: ESTRADIOL
     Indication: NIGHT SWEATS
     Dosage: 0.0375 MG, UNKNOWN
     Route: 062
  4. MINIVELLE [Suspect]
     Active Substance: ESTRADIOL
     Dosage: 0.05 MG, UNKNOWN
     Route: 062

REACTIONS (4)
  - Product quality issue [Unknown]
  - Drug effect decreased [Unknown]
  - Vaginal haemorrhage [Unknown]
  - Drug effect increased [Unknown]
